FAERS Safety Report 25330429 (Version 1)
Quarter: 2025Q2

REPORT INFORMATION
  Report Type: Spontaneous
  Country: GB (occurrence: GB)
  Receive Date: 20250519
  Receipt Date: 20250519
  Transmission Date: 20250717
  Serious: Yes (Hospitalization, Disabling, Other)
  Sender: ABBVIE
  Company Number: None

PATIENT
  Age: 78 Year
  Sex: Female
  Weight: 92 kg

DRUGS (3)
  1. BOTOX [Suspect]
     Active Substance: ONABOTULINUMTOXINA
     Indication: Adverse drug reaction
     Route: 065
     Dates: start: 202502, end: 202502
  2. BOTOX [Suspect]
     Active Substance: ONABOTULINUMTOXINA
     Indication: Adverse drug reaction
     Route: 065
     Dates: start: 2022, end: 2022
  3. DYSPORT [Suspect]
     Active Substance: ABOBOTULINUMTOXINA
     Indication: Cystocele
     Route: 065
     Dates: start: 2022

REACTIONS (10)
  - Sepsis [Unknown]
  - Pneumonia [Recovered/Resolved]
  - Drug ineffective [Unknown]
  - Pain [Unknown]
  - Fall [Unknown]
  - Muscular weakness [Recovering/Resolving]
  - Gastrointestinal motility disorder [Unknown]
  - Oesophageal motility disorder [Unknown]
  - Cough [Unknown]
  - Urinary tract infection [Unknown]

NARRATIVE: CASE EVENT DATE: 20240101
